FAERS Safety Report 4381094-9 (Version None)
Quarter: 2004Q2

REPORT INFORMATION
  Report Type: 
  Country: None (occurrence: None)
  Receive Date: 20040621
  Receipt Date: 20040609
  Transmission Date: 20050107
  Serious: Yes (Hospitalization)
  Sender: FDA-Public Use
  Company Number: FR-BRISTOL-MYERS SQUIBB COMPANY-12611117

PATIENT
  Age: 25 Year
  Sex: Male

DRUGS (7)
  1. PRO-DAFALGAN [Suspect]
     Route: 042
     Dates: start: 19990212, end: 19990213
  2. MUCOMYST [Suspect]
     Route: 048
     Dates: start: 19990212, end: 19990213
  3. MOTILIUM [Suspect]
     Route: 048
     Dates: start: 19990212, end: 19990213
  4. ULCAR [Suspect]
     Route: 048
     Dates: start: 19990212, end: 19990213
  5. RULID [Suspect]
     Route: 048
     Dates: start: 19990212, end: 19990215
  6. MOPRAL [Suspect]
     Route: 048
     Dates: start: 19990212, end: 19990212
  7. ASPEGIC 325 [Suspect]
     Indication: INFLUENZA
     Route: 048

REACTIONS (3)
  - AGRANULOCYTOSIS [None]
  - INFLUENZA [None]
  - MALLORY-WEISS SYNDROME [None]
